FAERS Safety Report 7563375-0 (Version None)
Quarter: 2011Q2

REPORT INFORMATION
  Report Type: 
  Country: None (occurrence: None)
  Receive Date: 20110622
  Receipt Date: 20110615
  Transmission Date: 20111010
  Serious: Yes (Other)
  Sender: FDA-Public Use
  Company Number: A0931625A

PATIENT
  Age: 57 Year
  Sex: Female

DRUGS (3)
  1. TEGRETOL [Concomitant]
  2. SYNTHROID [Concomitant]
  3. LAMICTAL XR [Suspect]
     Indication: EPILEPSY
     Dosage: 100MG PER DAY
     Route: 048
     Dates: start: 20110518

REACTIONS (5)
  - CONTUSION [None]
  - MYALGIA [None]
  - POSTICTAL STATE [None]
  - CONVULSION [None]
  - ARTHRALGIA [None]
